FAERS Safety Report 6636117-0 (Version None)
Quarter: 2010Q1

REPORT INFORMATION
  Report Type: 
  Country: None (occurrence: None)
  Receive Date: 20100311
  Receipt Date: 20100308
  Transmission Date: 20100710
  Serious: Yes (Death)
  Sender: FDA-Public Use
  Company Number: MSER20100006

PATIENT
  Age: 29 Year
  Sex: Male

DRUGS (3)
  1. MORPHINE SULFATE INJ [Suspect]
     Indication: DRUG USE FOR UNKNOWN INDICATION
  2. NARCAN [Suspect]
     Indication: ACCIDENTAL OVERDOSE
  3. XANAX (ALPRAZOLAM) (ALPRAZOLAM) [Concomitant]

REACTIONS (2)
  - ACCIDENTAL OVERDOSE [None]
  - DRUG TOXICITY [None]
